FAERS Safety Report 13835325 (Version 1)
Quarter: 2017Q3

REPORT INFORMATION
  Report Type: Spontaneous
  Country: US (occurrence: US)
  Receive Date: 20170804
  Receipt Date: 20170804
  Transmission Date: 20171127
  Serious: Yes (Other)
  Sender: FDA-Public Use
  Company Number: US-ASTELLAS-2017US030617

PATIENT
  Age: 14 Year
  Sex: Male

DRUGS (3)
  1. TACROLIMUS. [Suspect]
     Active Substance: TACROLIMUS
     Indication: TRANSPLANT
     Dosage: UNK, UNKNOWN FREQ.
     Route: 065
  2. THYMOGLOBULIN [Concomitant]
     Active Substance: LAPINE T-LYMPHOCYTE IMMUNE GLOBULIN
     Indication: TRANSPLANT
     Dosage: UNK, UNKNOWN FREQ.
     Route: 065
  3. SORAFENIB [Suspect]
     Active Substance: SORAFENIB
     Indication: HEPATOCELLULAR CARCINOMA
     Dosage: UNK, UNKNOWN FREQ.
     Route: 065

REACTIONS (10)
  - Transplant rejection [Unknown]
  - Laparotomy [Unknown]
  - Small intestinal obstruction [Unknown]
  - Post transplant lymphoproliferative disorder [Recovering/Resolving]
  - Pruritus [Unknown]
  - Smooth muscle cell neoplasm [Recovering/Resolving]
  - Impaired healing [Unknown]
  - Blood creatinine increased [Unknown]
  - Off label use [Unknown]
  - Epstein-Barr virus infection [Unknown]
